FAERS Safety Report 17527819 (Version 1)
Quarter: 2020Q1

REPORT INFORMATION
  Report Type: Spontaneous
  Country: NL (occurrence: DE)
  Receive Date: 20200311
  Receipt Date: 20200311
  Transmission Date: 20200409
  Serious: Yes (Other)
  Sender: FDA-Public Use
  Company Number: NL-KYOWAKIRIN-2020BKK003667

PATIENT

DRUGS (6)
  1. BISACODYL. [Suspect]
     Active Substance: BISACODYL
     Indication: LAXATIVE SUPPORTIVE CARE
     Dosage: UNKNOWN, AS NEEDED
     Route: 065
  2. PARACETAMOL [Suspect]
     Active Substance: ACETAMINOPHEN
     Indication: ANALGESIC INTERVENTION SUPPORTIVE THERAPY
     Dosage: UNKNOWN, AS NEEDED
     Route: 065
  3. GRANISETRON [Suspect]
     Active Substance: GRANISETRON
     Indication: ANTIEMETIC SUPPORTIVE CARE
     Dosage: UNKNOWN, AS NEEDED
     Route: 065
  4. METOCLOPRAMIDE. [Suspect]
     Active Substance: METOCLOPRAMIDE
     Indication: ANTIEMETIC SUPPORTIVE CARE
     Dosage: UNKNOWN, AS NEEDED
     Route: 065
  5. VINCRISTINE SULFATE. [Suspect]
     Active Substance: VINCRISTINE SULFATE
     Indication: NEPHROBLASTOMA
     Dosage: 1.5 MG/M2, WEEKLY (MAXIMUM 2 MG)
     Route: 065
  6. DACTINOMYCIN [Suspect]
     Active Substance: DACTINOMYCIN
     Indication: NEPHROBLASTOMA
     Dosage: 45 UG/KG, CYCLIC (MAXIMUM 2 MG, EVERY 3 WEEKS FROM 22 WEEKS GESTATION)
     Route: 065

REACTIONS (3)
  - Premature baby [Unknown]
  - Exposure during pregnancy [Recovered/Resolved]
  - Anaemia [Unknown]
